FAERS Safety Report 9116246 (Version 1)
Quarter: 2013Q1

REPORT INFORMATION
  Report Type: Spontaneous
  Country: US (occurrence: US)
  Receive Date: 20130225
  Receipt Date: 20130225
  Transmission Date: 20140127
  Serious: No
  Sender: FDA-Public Use
  Company Number: US-009507513-1302USA011581

PATIENT
  Sex: Female

DRUGS (1)
  1. CORICIDIN HBP FLU [Suspect]
     Indication: EUPHORIC MOOD
     Dosage: UNK, UNKNOWN
     Route: 048

REACTIONS (3)
  - Euphoric mood [Unknown]
  - Overdose [Unknown]
  - Off label use [Unknown]
